FAERS Safety Report 11065832 (Version 2)
Quarter: 2015Q2

REPORT INFORMATION
  Report Type: Spontaneous
  Country: US (occurrence: US)
  Receive Date: 20150425
  Receipt Date: 20150525
  Transmission Date: 20150821
  Serious: Yes (Disabling)
  Sender: FDA-Public Use
  Company Number: US-JNJFOC-20131011148

PATIENT
  Age: 41 Year
  Sex: Male

DRUGS (4)
  1. LORAZEPAM. [Concomitant]
     Active Substance: LORAZEPAM
     Dosage: WEANING OFF
     Route: 065
     Dates: start: 20130910
  2. PANGRAMIN SLIT [Concomitant]
     Indication: HYPERSENSITIVITY
     Route: 065
  3. CYMBALTA [Concomitant]
     Active Substance: DULOXETINE HYDROCHLORIDE
     Dosage: WEANING OFF
     Route: 065
     Dates: start: 20130910
  4. LEVAQUIN [Suspect]
     Active Substance: LEVOFLOXACIN
     Indication: SINUSITIS BACTERIAL
     Dosage: 5% DEXTROSE
     Route: 042
     Dates: start: 20130913

REACTIONS (4)
  - Tendon pain [Recovered/Resolved with Sequelae]
  - Asthenia [Unknown]
  - Tendonitis [Unknown]
  - Arthralgia [Recovered/Resolved with Sequelae]

NARRATIVE: CASE EVENT DATE: 20130913
